FAERS Safety Report 17751910 (Version 1)
Quarter: 2020Q2

REPORT INFORMATION
  Report Type: Spontaneous
  Country: US (occurrence: US)
  Receive Date: 20200506
  Receipt Date: 20200506
  Transmission Date: 20200714
  Serious: Yes (Other)
  Sender: FDA-Public Use
  Company Number: US-BRISTOL-MYERS SQUIBB COMPANY-BMS-2020-034869

PATIENT
  Sex: Male
  Weight: 86.17 kg

DRUGS (1)
  1. ELIQUIS [Suspect]
     Active Substance: APIXABAN
     Indication: STENT PLACEMENT
     Dosage: 5 MILLIGRAM, BID
     Route: 048
     Dates: start: 201909

REACTIONS (3)
  - Product dose omission [Unknown]
  - Intentional product use issue [Unknown]
  - Thrombosis [Recovered/Resolved]
